FAERS Safety Report 10872192 (Version 1)
Quarter: 2015Q1

REPORT INFORMATION
  Report Type: Report from Study
  Country: US (occurrence: US)
  Receive Date: 20150226
  Receipt Date: 20150226
  Transmission Date: 20150721
  Serious: Yes (Other)
  Sender: FDA-Public Use
  Company Number: US-BAXTER-2015BAX008728

PATIENT
  Age: 65 Year
  Sex: Female

DRUGS (6)
  1. CYCLOPHOSPHAMIDE FOR INJECTION, USP [Suspect]
     Active Substance: CYCLOPHOSPHAMIDE
     Indication: AMYLOIDOSIS
     Route: 065
  2. DEXAMETHASONE. [Suspect]
     Active Substance: DEXAMETHASONE
     Indication: AMYLOIDOSIS
     Route: 065
  3. BORTEZOMIB [Suspect]
     Active Substance: BORTEZOMIB
     Indication: AMYLOIDOSIS
     Route: 065
  4. PROFILNINE [Suspect]
     Active Substance: FACTOR IX COMPLEX
     Indication: FACTOR X DEFICIENCY
     Dosage: 100 U/KG
     Route: 065
  5. CYCLOPHOSPHAMIDE FOR INJECTION, USP [Suspect]
     Active Substance: CYCLOPHOSPHAMIDE
     Indication: OFF LABEL USE
  6. PROFILNINE [Suspect]
     Active Substance: FACTOR IX COMPLEX
     Dosage: 200 U/KG
     Route: 065

REACTIONS (3)
  - Peritoneal haemorrhage [Recovered/Resolved]
  - Hepatocellular carcinoma [Unknown]
  - Hypotension [Recovered/Resolved]
